FAERS Safety Report 21254181 (Version 1)
Quarter: 2022Q3

REPORT INFORMATION
  Report Type: Report from Study
  Country: FR (occurrence: FR)
  Receive Date: 20220825
  Receipt Date: 20220825
  Transmission Date: 20221027
  Serious: Yes (Death)
  Sender: FDA-Public Use
  Company Number: FR-PFIZER INC-PV202200049344

PATIENT

DRUGS (1)
  1. CYTARABINE [Suspect]
     Active Substance: CYTARABINE
     Indication: Myelodysplastic syndrome
     Dosage: FOR 14 DAYS, EVERY 28 DAYS FOR AT LEAST FOUR CYCLES
     Route: 058

REACTIONS (1)
  - Cerebral ischaemia [Fatal]
